FAERS Safety Report 19986658 (Version 1)
Quarter: 2021Q4

REPORT INFORMATION
  Report Type: Spontaneous
  Country: US (occurrence: US)
  Receive Date: 20211022
  Receipt Date: 20211022
  Transmission Date: 20220303
  Serious: No
  Sender: FDA-Public Use
  Company Number: US-ENDO PHARMACEUTICALS INC-2021-010796

PATIENT
  Age: 5 Decade
  Sex: Female

DRUGS (3)
  1. QWO [Suspect]
     Active Substance: COLLAGENASE CLOSTRIDIUM HISTOLYTICUM-AAES
     Indication: Peau d^orange
     Dosage: 0.23 MG, UNKNOWN, (THIRD TREATMENT)
     Route: 065
     Dates: start: 20210524
  2. QWO [Suspect]
     Active Substance: COLLAGENASE CLOSTRIDIUM HISTOLYTICUM-AAES
     Dosage: 0.23 MG, UNKNOWN, (FIRST TREATMENT)
     Route: 065
     Dates: start: 2021
  3. QWO [Suspect]
     Active Substance: COLLAGENASE CLOSTRIDIUM HISTOLYTICUM-AAES
     Dosage: 0.23 MG, UNKNOWN, (SECOND TREATMENT)
     Route: 065
     Dates: start: 2021

REACTIONS (3)
  - Injection site bruising [Not Recovered/Not Resolved]
  - Injection site discolouration [Not Recovered/Not Resolved]
  - Drug ineffective [Not Recovered/Not Resolved]

NARRATIVE: CASE EVENT DATE: 20210101
